FAERS Safety Report 10384167 (Version 1)
Quarter: 2014Q3

REPORT INFORMATION
  Report Type: Spontaneous
  Country: JP (occurrence: JP)
  Receive Date: 20140814
  Receipt Date: 20140814
  Transmission Date: 20150326
  Serious: Yes (Hospitalization, Other)
  Sender: FDA-Public Use
  Company Number: PHHY2014JP099525

PATIENT
  Age: 64 Year
  Sex: Female
  Weight: 46 kg

DRUGS (4)
  1. DOXORUBICIN [Suspect]
     Active Substance: DOXORUBICIN
     Indication: NON-HODGKIN^S LYMPHOMA
     Dosage: 420 MG/M2, UNK
  2. PREDNISONE. [Suspect]
     Active Substance: PREDNISONE
     Indication: NON-HODGKIN^S LYMPHOMA
  3. CYCLOPHOSPHAMIDE. [Suspect]
     Active Substance: CYCLOPHOSPHAMIDE
     Indication: NON-HODGKIN^S LYMPHOMA
  4. VINCRISTINE [Suspect]
     Active Substance: VINCRISTINE
     Indication: NON-HODGKIN^S LYMPHOMA

REACTIONS (12)
  - Pleural effusion [Recovering/Resolving]
  - Tricuspid valve incompetence [Recovering/Resolving]
  - Cardiomyopathy [Recovering/Resolving]
  - Mitral valve incompetence [Recovering/Resolving]
  - Cardiac failure [Recovering/Resolving]
  - Dyspnoea [Recovering/Resolving]
  - Gait disturbance [Unknown]
  - Cardiomegaly [Recovering/Resolving]
  - Peripheral swelling [Recovering/Resolving]
  - Walking disability [Unknown]
  - Pulmonary congestion [Recovering/Resolving]
  - Neuropathy peripheral [Unknown]
